FAERS Safety Report 6005081-X (Version None)
Quarter: 2008Q4

REPORT INFORMATION
  Report Type: 
  Country: None (occurrence: None)
  Receive Date: 20081216
  Receipt Date: 20081210
  Transmission Date: 20090506
  Serious: Yes (Death, Other)
  Sender: FDA-Public Use
  Company Number: PHHY2008JP28278

PATIENT
  Sex: Female
  Weight: 60 kg

DRUGS (9)
  1. NEORAL [Suspect]
     Indication: PEMPHIGUS
     Dosage: 100 MG, QD
     Route: 048
     Dates: start: 20080502, end: 20080815
  2. NEORAL [Suspect]
     Dosage: 200 MG/DAY
  3. CELESTONE [Suspect]
     Dosage: 3 MG, QD
     Route: 048
     Dates: start: 20080502
  4. CELESTONE [Suspect]
     Dosage: 2 MG,
     Route: 048
     Dates: end: 20080815
  5. LASIX [Concomitant]
     Dosage: 1 DF, UNK
     Route: 048
  6. ALDACTONE [Concomitant]
     Dosage: 1 DF, UNK
     Route: 048
  7. AMLODIN [Concomitant]
     Dosage: 1 DF, UNK
     Route: 048
  8. ALLELOCK [Concomitant]
     Dosage: 2 DF, UNK
     Route: 048
  9. GLAKAY [Concomitant]
     Dosage: 1 DF, UNK
     Route: 048

REACTIONS (12)
  - ACUTE RESPIRATORY FAILURE [None]
  - BLOOD ALKALINE PHOSPHATASE INCREASED [None]
  - BLOOD GLUCOSE INCREASED [None]
  - BLOOD LACTATE DEHYDROGENASE INCREASED [None]
  - BONE DISORDER [None]
  - C-REACTIVE PROTEIN INCREASED [None]
  - DIABETES MELLITUS [None]
  - GAMMA-GLUTAMYLTRANSFERASE INCREASED [None]
  - HAEMATOCRIT DECREASED [None]
  - HAEMOGLOBIN DECREASED [None]
  - PNEUMOCYSTIS JIROVECI PNEUMONIA [None]
  - SURGERY [None]
